FAERS Safety Report 18661365 (Version 1)
Quarter: 2020Q4

REPORT INFORMATION
  Report Type: Spontaneous
  Country: US (occurrence: US)
  Receive Date: 20201224
  Receipt Date: 20201224
  Transmission Date: 20210114
  Serious: No
  Sender: FDA-Public Use
  Company Number: US-RECORDATI RARE DISEASES-2103468

PATIENT
  Age: 65 Year
  Sex: Female

DRUGS (3)
  1. ISTURISA [Suspect]
     Active Substance: OSILODROSTAT PHOSPHATE
     Dates: start: 20200924
  2. KETOCONAZOLE. [Concomitant]
     Active Substance: KETOCONAZOLE
  3. ISTURISA [Suspect]
     Active Substance: OSILODROSTAT PHOSPHATE
     Indication: PITUITARY-DEPENDENT CUSHING^S SYNDROME
     Dates: start: 20200920

REACTIONS (3)
  - Night sweats [Unknown]
  - Blood glucose increased [Unknown]
  - Insomnia [Unknown]

NARRATIVE: CASE EVENT DATE: 20200921
